FAERS Safety Report 6535866-2 (Version None)
Quarter: 2009Q4

REPORT INFORMATION
  Report Type: 
  Country: None (occurrence: None)
  Receive Date: 20091229
  Receipt Date: 20090818
  Transmission Date: 20100525
  Serious: Yes (Hospitalization)
  Sender: FDA-Public Use
  Company Number: WAES 0908USA02993

PATIENT
  Age: 59 Year
  Sex: Female

DRUGS (5)
  1. ZETIA [Suspect]
     Indication: BLOOD CHOLESTEROL
     Dosage: 10 MG/DAILY/PO
     Route: 048
     Dates: start: 20040101, end: 20090720
  2. PROZAC [Concomitant]
  3. INSULIN [Concomitant]
  4. OXYBUTYNIN CHLORIDE [Concomitant]
  5. SPIRONOLACTONE [Concomitant]

REACTIONS (2)
  - CHOLELITHIASIS [None]
  - PANCREATITIS [None]
